FAERS Safety Report 19100618 (Version 2)
Quarter: 2021Q2

REPORT INFORMATION
  Report Type: Spontaneous
  Country: US (occurrence: US)
  Receive Date: 20210407
  Receipt Date: 20210429
  Transmission Date: 20210717
  Serious: Yes (Other)
  Sender: FDA-Public Use
  Company Number: US-APOTEX-2021AP007994

PATIENT
  Age: 62 Year
  Sex: Female

DRUGS (2)
  1. GLEEVEC [Suspect]
     Active Substance: IMATINIB MESYLATE
     Dosage: 100 MILLIGRAM
     Route: 065
     Dates: end: 20121111
  2. GLEEVEC [Suspect]
     Active Substance: IMATINIB MESYLATE
     Indication: GASTROINTESTINAL STROMAL TUMOUR
     Dosage: 400 MILLIGRAM, QD
     Route: 065
     Dates: end: 20121111

REACTIONS (9)
  - Rash pruritic [Recovered/Resolved]
  - Periorbital swelling [Recovered/Resolved]
  - Fatigue [Unknown]
  - Type IV hypersensitivity reaction [Recovered/Resolved]
  - Skin test negative [Recovered/Resolved]
  - Disturbance in attention [Unknown]
  - Angioedema [Recovered/Resolved]
  - Blister [Recovered/Resolved]
  - Rash maculo-papular [Recovered/Resolved]
